FAERS Safety Report 11522172 (Version 1)
Quarter: 2015Q3

REPORT INFORMATION
  Report Type: Spontaneous
  Country: FR (occurrence: FR)
  Receive Date: 20150918
  Receipt Date: 20150918
  Transmission Date: 20151125
  Serious: Yes (Other)
  Sender: FDA-Public Use
  Company Number: FR-PFIZER INC-2015306113

PATIENT
  Age: 64 Year
  Sex: Female
  Weight: 93 kg

DRUGS (6)
  1. MABTHERA [Suspect]
     Active Substance: RITUXIMAB
     Indication: DIFFUSE LARGE B-CELL LYMPHOMA
     Dosage: 740 MG ON DAY 1
     Dates: start: 201505
  2. ONDANSETRON ACCORD [Concomitant]
     Active Substance: ONDANSETRON
     Indication: VOMITING
     Dosage: 8 MG, 2X/DAY
     Dates: start: 201505
  3. DEPO-MEDROL [Suspect]
     Active Substance: METHYLPREDNISOLONE ACETATE
     Indication: DIFFUSE LARGE B-CELL LYMPHOMA
     Dosage: 40 MG, DAILY ON DAY 2 AND 3
     Dates: start: 201505
  4. CYTARABINE SANDOZ [Suspect]
     Active Substance: CYTARABINE
     Indication: DIFFUSE LARGE B-CELL LYMPHOMA
     Dosage: 950 MG ON DAY 2 AND 3
     Dates: start: 201505
  5. METHOTREXATE SODIUM. [Suspect]
     Active Substance: METHOTREXATE SODIUM
     Indication: DIFFUSE LARGE B-CELL LYMPHOMA
     Dosage: 5950 MG ON DAY 1
     Dates: start: 201505
  6. CALCIUM LEVOFOLINATE ZENTIVA [Concomitant]
     Active Substance: LEVOLEUCOVORIN CALCIUM
     Dosage: UNK
     Dates: start: 201505

REACTIONS (2)
  - Urosepsis [Recovered/Resolved]
  - Bone marrow failure [Recovered/Resolved]

NARRATIVE: CASE EVENT DATE: 201505
